FAERS Safety Report 4614227-7 (Version None)
Quarter: 2005Q1

REPORT INFORMATION
  Report Type: 
  Country: None (occurrence: None)
  Receive Date: 20050315
  Receipt Date: 20050221
  Transmission Date: 20050727
  Serious: Yes (Other)
  Sender: FDA-Public Use
  Company Number: USA050291262

PATIENT
  Age: 67 Year
  Sex: Female
  Weight: 65 kg

DRUGS (4)
  1. EVISTA [Suspect]
     Dates: start: 20030701, end: 20031201
  2. FORTEO [Suspect]
     Dosage: 20 UG/1 DAY
     Dates: start: 20050218
  3. ACTONEL [Concomitant]
  4. RANITIDINE [Concomitant]

REACTIONS (6)
  - HOT FLUSH [None]
  - MUSCLE SPASMS [None]
  - NAUSEA [None]
  - PAIN IN EXTREMITY [None]
  - PHARMACEUTICAL PRODUCT COMPLAINT [None]
  - SPINAL FUSION ACQUIRED [None]
